FAERS Safety Report 6711877-9 (Version None)
Quarter: 2010Q2

REPORT INFORMATION
  Report Type: 
  Country: None (occurrence: None)
  Receive Date: 20100505
  Receipt Date: 20100423
  Transmission Date: 20101027
  Serious: Yes (Hospitalization)
  Sender: FDA-Public Use
  Company Number: FR-ELI_LILLY_AND_COMPANY-FR201004006750

PATIENT
  Sex: Male

DRUGS (2)
  1. BYETTA [Suspect]
     Indication: DIABETES MELLITUS
     Dosage: 15 UG, 2/D
     Route: 058
  2. BYETTA [Suspect]
     Dosage: 15 UG, 4/D (4 INJECTIONS DAILY(

REACTIONS (4)
  - ALVEOLITIS ALLERGIC [None]
  - DIABETES MELLITUS INADEQUATE CONTROL [None]
  - INCORRECT DOSE ADMINISTERED [None]
  - OVERDOSE [None]
